FAERS Safety Report 10137557 (Version 1)
Quarter: 2014Q2

REPORT INFORMATION
  Report Type: Spontaneous
  Country: US (occurrence: US)
  Receive Date: 20140429
  Receipt Date: 20140429
  Transmission Date: 20141212
  Serious: Yes (Hospitalization)
  Sender: FDA-Public Use
  Company Number: US-BAYER-2014-059717

PATIENT
  Age: 36 Year
  Sex: Female
  Weight: 80 kg

DRUGS (8)
  1. YAZ [Suspect]
  2. YASMIN [Suspect]
  3. COUMADIN [Concomitant]
     Indication: PULMONARY EMBOLISM
  4. COUMADIN [Concomitant]
     Indication: PULMONARY EMBOLISM
     Dosage: 5 MG, DAILY
     Route: 048
  5. DILAUDID [Concomitant]
     Indication: PAIN MANAGEMENT
     Route: 042
  6. ZOFRAN [Concomitant]
     Indication: NAUSEA
  7. ZOFRAN [Concomitant]
     Indication: VOMITING
  8. VICODIN [Concomitant]
     Dosage: 5/500, ONE, Q6 (EVERY SIX) HOURS AS NEEDED
     Route: 048

REACTIONS (1)
  - Pulmonary embolism [Recovered/Resolved]
